FAERS Safety Report 24435634 (Version 2)
Quarter: 2024Q4

REPORT INFORMATION
  Report Type: Report from Study
  Country: CA (occurrence: CA)
  Receive Date: 20241015
  Receipt Date: 20241104
  Transmission Date: 20250114
  Serious: Yes (Other)
  Sender: ABBVIE
  Company Number: CA-ABBVIE-5960438

PATIENT
  Age: 19 Year
  Sex: Male

DRUGS (1)
  1. RINVOQ [Suspect]
     Active Substance: UPADACITINIB
     Indication: Colitis ulcerative
     Dosage: END DATE 2024
     Route: 048
     Dates: start: 20240802

REACTIONS (2)
  - Intestinal resection [Unknown]
  - Colitis [Unknown]

NARRATIVE: CASE EVENT DATE: 20240101
